FAERS Safety Report 5133133-5 (Version None)
Quarter: 2006Q4

REPORT INFORMATION
  Report Type: 
  Country: None (occurrence: None)
  Receive Date: 20061017
  Receipt Date: 20061004
  Transmission Date: 20070319
  Serious: Yes (Hospitalization)
  Sender: FDA-Public Use
  Company Number: 2006123875

PATIENT
  Age: 15 Year
  Sex: Female

DRUGS (1)
  1. METHYLPREDNISOLONE SODIUM SUCCINATE [Suspect]
     Indication: MULTIPLE SCLEROSIS
     Dosage: 1 GRAM (INFUSION), INTRAVENOUS
     Route: 042

REACTIONS (6)
  - ASTHENIA [None]
  - BRADYCARDIA [None]
  - HYPERVENTILATION [None]
  - MENTAL DISORDER [None]
  - OXYGEN SATURATION DECREASED [None]
  - TACHYCARDIA [None]
